FAERS Safety Report 6315150-2 (Version None)
Quarter: 2009Q3

REPORT INFORMATION
  Report Type: 
  Country: None (occurrence: None)
  Receive Date: 20090817
  Receipt Date: 20090619
  Transmission Date: 20100115
  Serious: Yes (Death, Hospitalization, Other)
  Sender: FDA-Public Use
  Company Number: ENTC2008-0409

PATIENT
  Age: 80 Year
  Sex: Male

DRUGS (1)
  1. STALEVO 100 [Suspect]
     Indication: PARKINSON'S DISEASE
     Dosage: 2 TABLETS (150/37.5/200 MG) PER DAY ORAL
     Route: 048
     Dates: start: 20060201

REACTIONS (6)
  - FALL [None]
  - HIP FRACTURE [None]
  - POST PROCEDURAL HAEMORRHAGE [None]
  - POSTOPERATIVE FEVER [None]
  - RESPIRATORY FAILURE [None]
  - SEPSIS [None]
